FAERS Safety Report 5787540-8 (Version None)
Quarter: 2008Q2

REPORT INFORMATION
  Report Type: 
  Country: None (occurrence: None)
  Receive Date: 20080625
  Receipt Date: 20080616
  Transmission Date: 20081010
  Serious: Yes (Other)
  Sender: FDA-Public Use
  Company Number: US-ROCHE-564800

PATIENT
  Sex: Female
  Weight: 62 kg

DRUGS (6)
  1. BONIVA [Suspect]
     Indication: OSTEOPOROSIS
     Dosage: PATIENT RECEIVED THIRD DOSE AND SCHEDULED FOR NEXT INFUSION IN JUNE 2008
     Route: 042
     Dates: start: 20070919, end: 20080319
  2. OLMESARTAN MEDOXOMIL [Suspect]
     Indication: HYPERTENSION
     Dosage: EVERY DAY
     Route: 048
     Dates: start: 20080101
  3. ACEI [Concomitant]
  4. HYDROCODONE [Concomitant]
     Indication: OSTEOARTHRITIS
     Dosage: HYDROCODONE/ADAP; STRENGTH: 10/500 MG; REGIMEN: AS REQUIRED
     Route: 048
     Dates: start: 20070101
  5. METOPROLOL [Concomitant]
     Indication: HYPERTENSION
     Dosage: EVERY DAY; METOPROLOL ER
     Route: 048
     Dates: start: 20080101
  6. NEXIUM [Concomitant]
     Indication: ILL-DEFINED DISORDER
     Dosage: EVERY DAY
     Route: 048
     Dates: start: 20080101

REACTIONS (3)
  - ANGIOEDEMA [None]
  - OEDEMA MOUTH [None]
  - PHARYNGEAL OEDEMA [None]
